FAERS Safety Report 25609223 (Version 1)
Quarter: 2025Q3

REPORT INFORMATION
  Report Type: Spontaneous
  Country: US (occurrence: US)
  Receive Date: 20250727
  Receipt Date: 20250727
  Transmission Date: 20251021
  Serious: No
  Sender: DR REDDYS
  Company Number: US-DRL-USA-USA/2025/06/009247

PATIENT
  Age: 90 Year
  Sex: Female
  Weight: 58.06 kg

DRUGS (5)
  1. OMEPRAZOLE [Suspect]
     Active Substance: OMEPRAZOLE
     Indication: Gastrooesophageal reflux disease
     Dosage: ONE HOUR BEFORE SUPPER. SHE OPENED THE CAPSULE AND PUT IT INTO ONE TABLESPOON OF APPLE SAUCE WITH A
     Route: 065
     Dates: start: 20250605
  2. OMEPRAZOLE [Suspect]
     Active Substance: OMEPRAZOLE
     Dosage: ONE HOUR BEFORE SUPPER. SHE OPENED THE CAPSULE AND PUT IT INTO ONE TABLESPOON OF APPLE SAUCE WITH A
     Route: 065
     Dates: start: 20250609
  3. PROCARDIA [Concomitant]
     Active Substance: NIFEDIPINE
     Indication: Raynaud^s phenomenon
     Route: 065
  4. PROCARDIA [Concomitant]
     Active Substance: NIFEDIPINE
     Indication: Hypertension
  5. HYDROCHLOROTHIAZIDE [Concomitant]
     Active Substance: HYDROCHLOROTHIAZIDE
     Indication: Product used for unknown indication
     Route: 065

REACTIONS (7)
  - Dysphonia [Recovering/Resolving]
  - Dizziness [Recovering/Resolving]
  - Feeling abnormal [Recovering/Resolving]
  - Pruritus [Recovered/Resolved]
  - Dry mouth [Not Recovered/Not Resolved]
  - Wrong technique in product usage process [Unknown]
  - Intentional dose omission [Unknown]
